FAERS Safety Report 25742382 (Version 1)
Quarter: 2025Q3

REPORT INFORMATION
  Report Type: Report from Study
  Country: US (occurrence: US)
  Receive Date: 20250829
  Receipt Date: 20250829
  Transmission Date: 20251020
  Serious: Yes (Hospitalization, Other)
  Sender: NOVO NORDISK
  Company Number: US-NOVOPROD-1507223

PATIENT
  Age: 57 Year
  Sex: Female

DRUGS (1)
  1. WEGOVY [Suspect]
     Active Substance: SEMAGLUTIDE
     Indication: Obesity
     Dates: start: 2022

REACTIONS (16)
  - Anaphylactic reaction [Unknown]
  - Intestinal obstruction [Unknown]
  - Breast cancer [Unknown]
  - Cervix carcinoma [Unknown]
  - Cushing^s syndrome [Unknown]
  - Foot fracture [Unknown]
  - Lymphoma [Unknown]
  - Thyroid cancer [Unknown]
  - Appendicitis [Unknown]
  - Incarcerated hernia [Unknown]
  - Panic attack [Unknown]
  - Hospitalisation [Unknown]
  - Blood cholesterol increased [Unknown]
  - Endometriosis [Unknown]
  - Hepatic steatosis [Unknown]
  - Vulvovaginal injury [Unknown]

NARRATIVE: CASE EVENT DATE: 20250101
